FAERS Safety Report 21517724 (Version 2)
Quarter: 2022Q4

REPORT INFORMATION
  Report Type: Spontaneous
  Country: RU (occurrence: RU)
  Receive Date: 20221028
  Receipt Date: 20221124
  Transmission Date: 20230112
  Serious: Yes (Hospitalization, Other)
  Sender: FDA-Public Use
  Company Number: RU-NOVARTISPH-NVSC2022RU227536

PATIENT
  Age: 69 Year
  Sex: Female
  Weight: 65 kg

DRUGS (2)
  1. BROLUCIZUMAB [Suspect]
     Active Substance: BROLUCIZUMAB
     Indication: Age-related macular degeneration
     Dosage: 6 MG, ONCE/SINGLE (NOVARTIS PHARMA STEIN AG)
     Route: 031
     Dates: start: 20220729
  2. EYLEA [Concomitant]
     Active Substance: AFLIBERCEPT
     Indication: Age-related macular degeneration
     Dosage: 2 MG, ONCE/SINGLE (VETTER PHARMA- FERTIGUNG. GMBH + CO.KG)
     Route: 031
     Dates: start: 20220617

REACTIONS (4)
  - Retinal exudates [Recovering/Resolving]
  - Vision blurred [Recovering/Resolving]
  - Eye pain [Recovering/Resolving]
  - Retinal vasculitis [Unknown]

NARRATIVE: CASE EVENT DATE: 20220810
